FAERS Safety Report 18341500 (Version 1)
Quarter: 2020Q4

REPORT INFORMATION
  Report Type: Spontaneous
  Country: FR (occurrence: FR)
  Receive Date: 20201004
  Receipt Date: 20201004
  Transmission Date: 20210113
  Serious: Yes (Hospitalization)
  Sender: FDA-Public Use
  Company Number: FR-TEVA-2020-FR-1834462

PATIENT
  Age: 50 Year
  Sex: Male
  Weight: 71.9 kg

DRUGS (2)
  1. AVASTIN [Suspect]
     Active Substance: BEVACIZUMAB
     Indication: GLIOBLASTOMA
     Dosage: 1 DOSAGE FORM
     Route: 042
     Dates: start: 20200528
  2. PREDNISOLONE. [Suspect]
     Active Substance: PREDNISOLONE
     Indication: GLIOBLASTOMA
     Dosage: 80 MG
     Route: 048

REACTIONS (3)
  - Musculoskeletal pain [Not Recovered/Not Resolved]
  - Joint effusion [Recovered/Resolved]
  - Arthritis [Recovered/Resolved]

NARRATIVE: CASE EVENT DATE: 202006
